FAERS Safety Report 10610872 (Version 1)
Quarter: 2014Q4

REPORT INFORMATION
  Report Type: Spontaneous
  Country: US (occurrence: US)
  Receive Date: 20141126
  Receipt Date: 20141126
  Transmission Date: 20150529
  Serious: No
  Sender: FDA-Public Use
  Company Number: US-MALLINCKRODT-T201402828

PATIENT
  Age: 50 Year
  Sex: Female

DRUGS (2)
  1. GABLOFEN [Suspect]
     Active Substance: BACLOFEN
     Indication: MUSCLE SPASTICITY
     Dosage: UNK
     Route: 037
  2. GABLOFEN [Suspect]
     Active Substance: BACLOFEN
     Dosage: UNK

REACTIONS (3)
  - Abdominal distension [Recovered/Resolved]
  - Adverse event [Unknown]
  - Pyrexia [Unknown]

NARRATIVE: CASE EVENT DATE: 201404
